FAERS Safety Report 12467150 (Version 1)
Quarter: 2016Q2

REPORT INFORMATION
  Report Type: Spontaneous
  Country: US (occurrence: None)
  Receive Date: 20160614
  Receipt Date: 20160614
  Transmission Date: 20160815
  Serious: No
  Sender: FDA-Public Use
  Company Number: None

PATIENT
  Sex: Male

DRUGS (1)
  1. SEVOFLURANE. [Suspect]
     Active Substance: SEVOFLURANE

REACTIONS (4)
  - Respiratory failure [None]
  - Toxicity to various agents [None]
  - Depressed level of consciousness [None]
  - Intentional overdose [None]
